FAERS Safety Report 4986662-9 (Version None)
Quarter: 2006Q2

REPORT INFORMATION
  Report Type: 
  Country: None (occurrence: None)
  Receive Date: 20060428
  Receipt Date: 20050114
  Transmission Date: 20061013
  Serious: Yes (Hospitalization, Disabling)
  Sender: FDA-Public Use
  Company Number: US-MERCK-0501USA03373

PATIENT
  Age: 47 Year
  Sex: Male
  Weight: 84 kg

DRUGS (5)
  1. VIOXX [Suspect]
     Indication: ARTHRALGIA
     Route: 048
     Dates: start: 19991210, end: 20040530
  2. PREVACID [Concomitant]
     Route: 065
  3. VALIUM [Concomitant]
     Route: 065
  4. RIBAVIRIN [Suspect]
     Route: 065
  5. PEGASYS [Suspect]
     Route: 065

REACTIONS (19)
  - ACUTE CORONARY SYNDROME [None]
  - ACUTE MYOCARDIAL INFARCTION [None]
  - ANAEMIA [None]
  - ANGINA UNSTABLE [None]
  - ARTHRALGIA [None]
  - BACK INJURY [None]
  - CHEST PAIN [None]
  - CHRONIC OBSTRUCTIVE PULMONARY DISEASE [None]
  - CONTUSION [None]
  - CORONARY ARTERY DISEASE [None]
  - DEEP VEIN THROMBOSIS [None]
  - DIVERTICULUM [None]
  - DRUG INEFFECTIVE [None]
  - EPICONDYLITIS [None]
  - GASTROOESOPHAGEAL REFLUX DISEASE [None]
  - GLAUCOMA [None]
  - HEPATITIS C [None]
  - PANCREATITIS ACUTE [None]
  - POLYP [None]
